FAERS Safety Report 18916435 (Version 1)
Quarter: 2021Q1

REPORT INFORMATION
  Report Type: Spontaneous
  Country: US (occurrence: US)
  Receive Date: 20210219
  Receipt Date: 20210219
  Transmission Date: 20210420
  Serious: No
  Sender: FDA-Public Use
  Company Number: US-BAYER-2021-067692

PATIENT
  Age: 59 Year
  Sex: Female
  Weight: 75.75 kg

DRUGS (5)
  1. ALEVE [Suspect]
     Active Substance: NAPROXEN SODIUM
     Indication: MIGRAINE
     Dosage: 2 DF
     Route: 048
     Dates: start: 202101
  2. TYLENOL [Concomitant]
     Active Substance: ACETAMINOPHEN
     Indication: MIGRAINE
  3. UBRELVY [Concomitant]
     Active Substance: UBROGEPANT
     Indication: MIGRAINE
  4. TYLENOL [Concomitant]
     Active Substance: ACETAMINOPHEN
     Indication: HEADACHE
     Dosage: 100 MG
     Route: 048
     Dates: start: 202101
  5. UBRELVY [Concomitant]
     Active Substance: UBROGEPANT
     Indication: HEADACHE
     Dosage: UNK
     Dates: start: 202101

REACTIONS (2)
  - Product use in unapproved indication [Unknown]
  - Photophobia [Unknown]

NARRATIVE: CASE EVENT DATE: 202101
